FAERS Safety Report 5403324-4 (Version None)
Quarter: 2007Q3

REPORT INFORMATION
  Report Type: 
  Country: None (occurrence: None)
  Receive Date: 20070801
  Receipt Date: 20070727
  Transmission Date: 20080115
  Serious: Yes (Death, Hospitalization)
  Sender: FDA-Public Use
  Company Number: CO-ABBOTT-07P-036-0375998-00

PATIENT
  Age: 44 Year
  Sex: Female
  Weight: 50 kg

DRUGS (3)
  1. HUMIRA [Suspect]
     Indication: RHEUMATOID ARTHRITIS
     Route: 058
     Dates: start: 20061201, end: 20070704
  2. METHOTREXATE [Concomitant]
     Indication: RHEUMATOID ARTHRITIS
     Route: 048
     Dates: end: 20070701
  3. PARACETAMOL [Concomitant]
     Indication: ANALGESIA
     Route: 048
     Dates: end: 20070701

REACTIONS (3)
  - MENINGITIS BACTERIAL [None]
  - PALLOR [None]
  - RESPIRATORY FAILURE [None]
